FAERS Safety Report 5333986-1 (Version None)
Quarter: 2007Q2

REPORT INFORMATION
  Report Type: 
  Country: None (occurrence: None)
  Receive Date: 20070308
  Receipt Date: 20070126
  Transmission Date: 20071010
  Serious: No
  Sender: FDA-Public Use
  Company Number: 2007-BP-01320BP

PATIENT
  Sex: Female

DRUGS (3)
  1. SPIRIVA [Suspect]
     Indication: PRODUCTIVE COUGH
     Dosage: 18 MCG (18 MCG, 1 IN 1 D), IH
     Route: 055
     Dates: start: 20070122, end: 20070123
  2. RANITIDINE [Concomitant]
  3. ARTHROTEC [Concomitant]

REACTIONS (14)
  - ARTHRALGIA [None]
  - BACK PAIN [None]
  - CHEST DISCOMFORT [None]
  - CHEST PAIN [None]
  - DIARRHOEA [None]
  - DIZZINESS [None]
  - DYSPEPSIA [None]
  - FATIGUE [None]
  - HYPOAESTHESIA [None]
  - MUSCULAR WEAKNESS [None]
  - PRESYNCOPE [None]
  - TACHYCARDIA [None]
  - VISION BLURRED [None]
  - VISUAL DISTURBANCE [None]
